APPROVED DRUG PRODUCT: BRIAN CARE
Active Ingredient: CHLORHEXIDINE GLUCONATE
Strength: 4%
Dosage Form/Route: SOLUTION;TOPICAL
Application: A071419 | Product #001
Applicant: SOAPCO INC
Approved: Dec 17, 1987 | RLD: No | RS: No | Type: DISCN